FAERS Safety Report 5715289-6 (Version None)
Quarter: 2008Q2

REPORT INFORMATION
  Report Type: 
  Country: None (occurrence: None)
  Receive Date: 20080423
  Receipt Date: 20080414
  Transmission Date: 20081010
  Serious: Yes (Other)
  Sender: FDA-Public Use
  Company Number: BR-PFIZER INC-2008025632

PATIENT
  Sex: Female
  Weight: 50 kg

DRUGS (1)
  1. DEPO-PROVERA SUSPENSION/INJ [Suspect]
     Indication: CONTRACEPTION
     Route: 030
     Dates: start: 20080101, end: 20080101

REACTIONS (6)
  - ABORTION SPONTANEOUS [None]
  - INAPPROPRIATE SCHEDULE OF DRUG ADMINISTRATION [None]
  - INFLUENZA [None]
  - LIBIDO DECREASED [None]
  - PYREXIA [None]
  - UNINTENDED PREGNANCY [None]
